FAERS Safety Report 18511652 (Version 2)
Quarter: 2020Q4

REPORT INFORMATION
  Report Type: Spontaneous
  Country: DE (occurrence: DE)
  Receive Date: 20201117
  Receipt Date: 20201124
  Transmission Date: 20210114
  Serious: Yes (Hospitalization, Other)
  Sender: FDA-Public Use
  Company Number: NVSC2020DE300561

PATIENT
  Age: 49 Year
  Sex: Male

DRUGS (6)
  1. CARBOPLATIN. [Suspect]
     Active Substance: CARBOPLATIN
     Indication: NON-SMALL CELL LUNG CANCER
     Dosage: UNK (UNK UNK, CYCLICAL)
     Route: 065
     Dates: start: 201810, end: 201812
  2. PEMETREXED DISODIUM [Suspect]
     Active Substance: PEMETREXED DISODIUM
     Indication: NON-SMALL CELL LUNG CANCER
     Dosage: UNK (UNK UNK, CYCLICAL)
     Route: 065
     Dates: start: 201810, end: 201812
  3. PEMBROLIZUMAB. [Suspect]
     Active Substance: PEMBROLIZUMAB
     Indication: NON-SMALL CELL LUNG CANCER
     Dosage: 200 MG (200MG COMBINED WITH PEMETREXED, MAINTENANCE)
     Route: 065
     Dates: start: 201901, end: 20190213
  4. PEMETREXED DISODIUM [Suspect]
     Active Substance: PEMETREXED DISODIUM
     Dosage: 500 MILLIGRAM/SQ. METER (MG/M2) ON DAY 1
     Route: 065
     Dates: start: 201901
  5. PEMBROLIZUMAB. [Suspect]
     Active Substance: PEMBROLIZUMAB
     Dosage: UNK (UNK UNK, CYCLICAL)
     Route: 065
     Dates: start: 201810, end: 201812
  6. DENOSUMAB [Suspect]
     Active Substance: DENOSUMAB
     Indication: NON-SMALL CELL LUNG CANCER
     Dosage: 120 MG, 4W (120MG EVERY 4 WEEKS)
     Route: 065
     Dates: start: 201810, end: 201812

REACTIONS (3)
  - Tubulointerstitial nephritis [Unknown]
  - Nausea [Unknown]
  - Vomiting [Unknown]

NARRATIVE: CASE EVENT DATE: 2019
